FAERS Safety Report 8063570-0 (Version None)
Quarter: 2012Q1

REPORT INFORMATION
  Report Type: 
  Country: None (occurrence: None)
  Receive Date: 20120123
  Receipt Date: 20111005
  Transmission Date: 20120608
  Serious: Yes (Other)
  Sender: FDA-Public Use
  Company Number: CA-ROCHE-1032254

PATIENT
  Sex: Female

DRUGS (1)
  1. XOLAIR [Suspect]
     Indication: ASTHMA
     Route: 058
     Dates: start: 20110308

REACTIONS (6)
  - CHILLS [None]
  - ERYTHEMA [None]
  - THROMBOPHLEBITIS [None]
  - SKIN BURNING SENSATION [None]
  - ECCHYMOSIS [None]
  - SKIN FRAGILITY [None]
